FAERS Safety Report 4913101-6 (Version None)
Quarter: 2006Q1

REPORT INFORMATION
  Report Type: 
  Country: None (occurrence: None)
  Receive Date: 20060210
  Receipt Date: 20060127
  Transmission Date: 20060701
  Serious: Yes (Death, Hospitalization)
  Sender: FDA-Public Use
  Company Number: L05-USA-03935-03

PATIENT
  Age: 43 Year
  Sex: Female

DRUGS (9)
  1. CELEXA [Suspect]
  2. METHADONE [Suspect]
  3. SEROQUEL [Concomitant]
  4. PRILOSEC [Suspect]
  5. VIOXX [Concomitant]
  6. XANAX [Suspect]
  7. LIBRAX [Suspect]
  8. KEFLEX (CEFALEXN MONOHYDRATE) [Concomitant]
  9. THC [Suspect]

REACTIONS (13)
  - ALANINE AMINOTRANSFERASE INCREASED [None]
  - ASPARTATE AMINOTRANSFERASE INCREASED [None]
  - ATELECTASIS [None]
  - BLOOD CREATINE PHOSPHOKINASE INCREASED [None]
  - BLOOD CREATINE PHOSPHOKINASE MB INCREASED [None]
  - BLOOD UREA INCREASED [None]
  - BODY TEMPERATURE INCREASED [None]
  - COMPLETED SUICIDE [None]
  - CREATINE URINE INCREASED [None]
  - DIALYSIS [None]
  - HYPOTENSION [None]
  - TACHYCARDIA [None]
  - VENTRICULAR EXTRASYSTOLES [None]
